FAERS Safety Report 12400659 (Version 2)
Quarter: 2016Q2

REPORT INFORMATION
  Report Type: Spontaneous
  Country: US (occurrence: US)
  Receive Date: 20160525
  Receipt Date: 20160525
  Transmission Date: 20160815
  Serious: No
  Sender: FDA-Public Use
  Company Number: US-SA-2015SA089305

PATIENT
  Age: 50 Year
  Sex: Male

DRUGS (4)
  1. LANTUS SOLOSTAR [Suspect]
     Active Substance: INSULIN GLARGINE
     Indication: TYPE 2 DIABETES MELLITUS
     Dosage: DOSE:14 UNIT(S)
     Route: 065
     Dates: start: 20150617
  2. SOLOSTAR [Concomitant]
     Active Substance: DEVICE
     Dates: start: 20150617
  3. LANTUS SOLOSTAR [Suspect]
     Active Substance: INSULIN GLARGINE
     Indication: TYPE 2 DIABETES MELLITUS
     Dosage: DOSE:10 UNIT(S)
     Route: 065
     Dates: end: 201506
  4. SOLOSTAR [Concomitant]
     Active Substance: DEVICE
     Dates: end: 201506

REACTIONS (1)
  - Myopathy [Unknown]
